FAERS Safety Report 16076418 (Version 1)
Quarter: 2019Q1

REPORT INFORMATION
  Report Type: Spontaneous
  Country: US (occurrence: US)
  Receive Date: 20190315
  Receipt Date: 20190315
  Transmission Date: 20190418
  Serious: No
  Sender: FDA-Public Use
  Company Number: US-PFIZER INC-2019106982

PATIENT

DRUGS (1)
  1. BUPIVACAINE HCL [Suspect]
     Active Substance: BUPIVACAINE HYDROCHLORIDE
     Indication: SPINAL EPIDURAL HAEMORRHAGE
     Dosage: UNK (0.75% 2ML IN DEXTROSE 8.2%)

REACTIONS (1)
  - Drug ineffective [Unknown]
